FAERS Safety Report 6112400-2 (Version None)
Quarter: 2009Q1

REPORT INFORMATION
  Report Type: 
  Country: None (occurrence: None)
  Receive Date: 20090311
  Receipt Date: 20090311
  Transmission Date: 20090719
  Serious: Yes (Hospitalization)
  Sender: FDA-Public Use
  Company Number: None

PATIENT
  Sex: Male
  Weight: 46.4 kg

DRUGS (2)
  1. CISPLATIN [Suspect]
     Dosage: 22 MG
     Dates: end: 20090223
  2. TAXOL [Suspect]
     Dosage: 60 MG
     Dates: end: 20090223

REACTIONS (4)
  - BLOOD MAGNESIUM ABNORMAL [None]
  - DEHYDRATION [None]
  - NEUTROPHIL COUNT DECREASED [None]
  - OESOPHAGITIS [None]
